FAERS Safety Report 8800033 (Version 1)
Quarter: 2012Q4

REPORT INFORMATION
  Report Type: 
  Country: JP (occurrence: JP)
  Receive Date: 20120921
  Receipt Date: 20120921
  Transmission Date: 20130627
  Serious: Yes (Death)
  Sender: FDA-Public Use
  Company Number: PHHY2012JP081455

PATIENT
  Age: 59 Year
  Sex: Male

DRUGS (2)
  1. CICLOSPORIN [Suspect]
     Indication: INTERSTITIAL LUNG DISEASE
  2. PREDNISOLONE [Suspect]
     Indication: INTERSTITIAL LUNG DISEASE

REACTIONS (1)
  - Interstitial lung disease [Fatal]
